FAERS Safety Report 4282917-4 (Version None)
Quarter: 2004Q1

REPORT INFORMATION
  Report Type: 
  Country: None (occurrence: None)
  Receive Date: 20040130
  Receipt Date: 20031118
  Transmission Date: 20041129
  Serious: No
  Sender: FDA-Public Use
  Company Number: US-BRISTOL-MYERS SQUIBB COMPANY-12438099

PATIENT
  Sex: Female

DRUGS (1)
  1. SERZONE [Suspect]

REACTIONS (7)
  - EYE IRRITATION [None]
  - FEELING ABNORMAL [None]
  - GASTRIC DISORDER [None]
  - HEPATIC FUNCTION ABNORMAL [None]
  - OCULAR ICTERUS [None]
  - PAIN [None]
  - WEIGHT DECREASED [None]
